FAERS Safety Report 9571160 (Version 2)
Quarter: 2013Q4

REPORT INFORMATION
  Report Type: Spontaneous
  Country: AU (occurrence: AU)
  Receive Date: 20131001
  Receipt Date: 20131001
  Transmission Date: 20140711
  Serious: Yes (Life-Threatening, Hospitalization, Other)
  Sender: FDA-Public Use
  Company Number: PHHY2013AU102783

PATIENT
  Age: 78 Year
  Sex: Female

DRUGS (5)
  1. EVEROLIMUS [Suspect]
     Indication: BREAST CANCER METASTATIC
     Dosage: 10 MG, DAILY
     Route: 048
     Dates: start: 201306, end: 201309
  2. EXEMESTANE [Concomitant]
     Indication: BREAST CANCER
     Dosage: 25 MG, DAILY
     Route: 048
     Dates: end: 201309
  3. ALENDRONATE [Concomitant]
     Indication: BREAST CANCER
     Dosage: 50 MG, DAILY
     Route: 048
     Dates: end: 201309
  4. NATRILIX [Concomitant]
  5. COVERSYL                                /BEL/ [Concomitant]

REACTIONS (5)
  - Renal failure acute [Not Recovered/Not Resolved]
  - Blood creatinine increased [Unknown]
  - Nausea [Not Recovered/Not Resolved]
  - Renal tubular necrosis [Unknown]
  - Lethargy [Unknown]
